FAERS Safety Report 18461302 (Version 1)
Quarter: 2020Q4

REPORT INFORMATION
  Report Type: Report from Study
  Country: US (occurrence: US)
  Receive Date: 20201104
  Receipt Date: 20201104
  Transmission Date: 20210114
  Serious: Yes (Hospitalization)
  Sender: FDA-Public Use
  Company Number: US-EMD SERONO-9168624

PATIENT
  Sex: Female

DRUGS (1)
  1. REBIF [Suspect]
     Active Substance: INTERFERON BETA-1A
     Indication: MULTIPLE SCLEROSIS
     Route: 058
     Dates: start: 20190410, end: 202005

REACTIONS (5)
  - Injection site pain [Unknown]
  - Ill-defined disorder [Unknown]
  - Muscular weakness [Unknown]
  - Injection site bruising [Unknown]
  - Needle fatigue [Unknown]
